FAERS Safety Report 17115586 (Version 1)
Quarter: 2019Q4

REPORT INFORMATION
  Report Type: Spontaneous
  Country: US (occurrence: US)
  Receive Date: 20191205
  Receipt Date: 20191205
  Transmission Date: 20200122
  Serious: Yes (Other)
  Sender: FDA-Public Use
  Company Number: US-MYLANLABS-2019M1120185

PATIENT
  Sex: Male

DRUGS (12)
  1. PREDNISONE. [Suspect]
     Active Substance: PREDNISONE
     Indication: ENDOTHELIOMATOSIS
     Dosage: 0.5 MILLIGRAM/KILOGRAM, QD
     Route: 048
  2. PREDNISONE. [Suspect]
     Active Substance: PREDNISONE
     Indication: GASTROINTESTINAL HAEMORRHAGE
  3. AMINOCAPROIC ACID. [Concomitant]
     Active Substance: AMINOCAPROIC ACID
     Indication: GASTROINTESTINAL HAEMORRHAGE
  4. AMINOCAPROIC ACID. [Concomitant]
     Active Substance: AMINOCAPROIC ACID
     Indication: ENDOTHELIOMATOSIS
     Route: 065
  5. AMINOCAPROIC ACID. [Concomitant]
     Active Substance: AMINOCAPROIC ACID
     Indication: ENDOTHELIOMATOSIS
     Dosage: GIVEN IN 4 DOSES
     Route: 048
  6. TRIMETHOPRIM SULFAMETHOXAZOLE [Concomitant]
     Active Substance: SULFAMETHOXAZOLE\TRIMETHOPRIM
     Indication: PNEUMOCYSTIS JIROVECII PNEUMONIA
     Dosage: ADMINISTERED WEEKLY
     Route: 065
  7. IMMUNOGLOBULIN                     /00025201/ [Concomitant]
     Active Substance: HUMAN IMMUNOGLOBULIN G
     Indication: GASTROINTESTINAL HAEMORRHAGE
  8. OCTREOTIDE. [Suspect]
     Active Substance: OCTREOTIDE
     Indication: ENDOTHELIOMATOSIS
     Dosage: INITIAL DOSE NOT STATED
     Route: 042
  9. AMINOCAPROIC ACID. [Concomitant]
     Active Substance: AMINOCAPROIC ACID
     Indication: GASTROINTESTINAL HAEMORRHAGE
  10. IMMUNOGLOBULIN                     /00025201/ [Concomitant]
     Active Substance: HUMAN IMMUNOGLOBULIN G
     Indication: ENDOTHELIOMATOSIS
     Dosage: 2 DOSES 1G/KG/DOSE (1 DAY APART)
     Route: 042
  11. CAFFEINE. [Concomitant]
     Active Substance: CAFFEINE
     Indication: SLEEP APNOEA SYNDROME
     Dosage: 5 MILLIGRAM/KILOGRAM, QD
     Route: 048
  12. OCTREOTIDE. [Suspect]
     Active Substance: OCTREOTIDE
     Indication: GASTROINTESTINAL HAEMORRHAGE
     Dosage: 1 MICROGRAM/KILOGRAM, QH
     Route: 042

REACTIONS (4)
  - Rib fracture [Recovered/Resolved]
  - Growth retardation [Recovered/Resolved]
  - Osteopenia [Unknown]
  - Off label use [Unknown]
